FAERS Safety Report 16228777 (Version 1)
Quarter: 2019Q2

REPORT INFORMATION
  Report Type: Spontaneous
  Country: US (occurrence: US)
  Receive Date: 20190319
  Receipt Date: 20190319
  Transmission Date: 20190711
  Serious: Yes (Hospitalization, Other)
  Sender: FDA-Public Use
  Company Number: None

PATIENT
  Age: 24 Year
  Sex: Female
  Weight: 45.36 kg

DRUGS (4)
  1. LO-LOSARTAN [Concomitant]
  2. VALIUM [Concomitant]
     Active Substance: DIAZEPAM
  3. FYCOMPA [Suspect]
     Active Substance: PERAMPANEL
     Indication: EPILEPSY
     Dosage: ?          QUANTITY:2MG-4MG-6MG;?
     Route: 048
     Dates: start: 20181019, end: 20181105
  4. MULTIVIT [Concomitant]
     Active Substance: VITAMINS

REACTIONS (27)
  - Seizure [None]
  - Wound [None]
  - Facial bones fracture [None]
  - Concussion [None]
  - Pain [None]
  - Skin exfoliation [None]
  - Blood glucose increased [None]
  - Mood swings [None]
  - Gait disturbance [None]
  - Decreased appetite [None]
  - Confusional state [None]
  - Tongue disorder [None]
  - Aggression [None]
  - Hostility [None]
  - Rash [None]
  - Urticaria [None]
  - Head injury [None]
  - Contusion [None]
  - Muscle strain [None]
  - Homicidal ideation [None]
  - Loss of consciousness [None]
  - Ligament sprain [None]
  - Formication [None]
  - Fear [None]
  - Suicidal ideation [None]
  - Face injury [None]
  - Social avoidant behaviour [None]

NARRATIVE: CASE EVENT DATE: 201811
